FAERS Safety Report 22303728 (Version 1)
Quarter: 2023Q2

REPORT INFORMATION
  Report Type: Spontaneous
  Country: CN (occurrence: CN)
  Receive Date: 20230510
  Receipt Date: 20230510
  Transmission Date: 20230721
  Serious: Yes (Other)
  Sender: FDA-Public Use
  Company Number: CN-PFIZER INC-202300182376

PATIENT
  Age: 71 Year
  Sex: Female

DRUGS (2)
  1. DIFLUCAN [Suspect]
     Active Substance: FLUCONAZOLE
     Dosage: 8 CAPSULES EVERY DAY
     Route: 048
  2. FLUCONAZOLE [Suspect]
     Active Substance: FLUCONAZOLE
     Indication: Cryptococcosis
     Dosage: UNK

REACTIONS (11)
  - Myalgia [Unknown]
  - Arthralgia [Unknown]
  - Muscular weakness [Unknown]
  - Pain in extremity [Unknown]
  - Nausea [Unknown]
  - Soft tissue disorder [Unknown]
  - Poor quality sleep [Unknown]
  - Gait disturbance [Unknown]
  - Muscle atrophy [Unknown]
  - Pain [Unknown]
  - Discomfort [Unknown]
